FAERS Safety Report 14353335 (Version 12)
Quarter: 2018Q2

REPORT INFORMATION
  Report Type: Spontaneous
  Country: DE (occurrence: DE)
  Receive Date: 20180105
  Receipt Date: 20180601
  Transmission Date: 20180711
  Serious: Yes (Hospitalization, Other)
  Sender: FDA-Public Use
  Company Number: DE-JNJFOC-20171234675

PATIENT
  Age: 21 Year
  Sex: Female
  Weight: 115 kg

DRUGS (3)
  1. CETIRIZINE HYDROCHLORIDE. [Suspect]
     Active Substance: CETIRIZINE HYDROCHLORIDE
     Route: 065
  2. CETIRIZINE HYDROCHLORIDE. [Suspect]
     Active Substance: CETIRIZINE HYDROCHLORIDE
     Indication: SEASONAL ALLERGY
     Route: 065
     Dates: start: 201103
  3. ABILIFY [Suspect]
     Active Substance: ARIPIPRAZOLE
     Indication: SCHIZOAFFECTIVE DISORDER
     Dosage: DAILY DOSE: 5 MG, ONCE DAILY (QD)
     Route: 048
     Dates: start: 200906, end: 20110407

REACTIONS (9)
  - Genital rash [Unknown]
  - Maternal exposure during pregnancy [Unknown]
  - Vaginal haemorrhage [Recovered/Resolved]
  - Exposure via body fluid [Unknown]
  - Normal newborn [Unknown]
  - Gestational diabetes [Unknown]
  - Constipation [Unknown]
  - Streptococcus test positive [Unknown]
  - Oedema [Unknown]

NARRATIVE: CASE EVENT DATE: 201105
